FAERS Safety Report 11653377 (Version 4)
Quarter: 2015Q4

REPORT INFORMATION
  Report Type: Spontaneous
  Country: FR (occurrence: FR)
  Receive Date: 20151022
  Receipt Date: 20151211
  Transmission Date: 20160304
  Serious: Yes (Life-Threatening, Hospitalization)
  Sender: FDA-Public Use
  Company Number: PHHY2015FR135048

PATIENT
  Age: 59 Year
  Sex: Female
  Weight: 69 kg

DRUGS (21)
  1. YERVOY [Suspect]
     Active Substance: IPILIMUMAB
     Indication: PRODUCT USED FOR UNKNOWN INDICATION
     Dosage: 0.1429 MG/KG, 3 MG/KG AT 200MG TIW
     Route: 042
     Dates: start: 20150323
  2. YERVOY [Suspect]
     Active Substance: IPILIMUMAB
     Dosage: 3 MG/KG AT 200MG, TIW
     Route: 042
     Dates: start: 20150505
  3. MUPHORAN [Suspect]
     Active Substance: FOTEMUSTINE
     Dosage: 170 MG, QW
     Route: 042
     Dates: start: 20150827, end: 20150828
  4. SOLU-MEDROL [Concomitant]
     Active Substance: METHYLPREDNISOLONE SODIUM SUCCINATE
     Indication: PRODUCT USED FOR UNKNOWN INDICATION
     Dosage: 1000 MG, UNK (BOLUS)
     Route: 065
     Dates: start: 20150624
  5. YERVOY [Suspect]
     Active Substance: IPILIMUMAB
     Dosage: 3 MG/KG AT 200MG, TIW
     Route: 042
     Dates: start: 20150526, end: 20150526
  6. CORTANCYL [Concomitant]
     Active Substance: PREDNISONE
     Dosage: 8 MG, QD
     Route: 065
  7. DETICENE [Suspect]
     Active Substance: DACARBAZINE
     Dosage: 320 MG, QD
     Route: 042
     Dates: start: 20150223, end: 20150226
  8. MUPHORAN [Suspect]
     Active Substance: FOTEMUSTINE
     Indication: PRODUCT USED FOR UNKNOWN INDICATION
     Dosage: 170 MG, 100 MG/KG2, QW
     Route: 042
     Dates: start: 20150820, end: 20150820
  9. CORTANCYL [Concomitant]
     Active Substance: PREDNISONE
     Dosage: 30 MG, QD
     Route: 065
     Dates: start: 20150708
  10. ZOPHREN [Suspect]
     Active Substance: ONDANSETRON
     Indication: PRODUCT USED FOR UNKNOWN INDICATION
     Dosage: 8 MG/4ML
     Route: 042
     Dates: start: 20150820, end: 20150820
  11. ZOPHREN [Suspect]
     Active Substance: ONDANSETRON
     Dosage: 8 MG/4ML
     Route: 042
     Dates: start: 20150911, end: 20150911
  12. DETICENE [Suspect]
     Active Substance: DACARBAZINE
     Indication: PRODUCT USED FOR UNKNOWN INDICATION
     Dosage: 430 MG, QD
     Route: 042
     Dates: start: 20150120, end: 20150123
  13. ZOPHREN [Suspect]
     Active Substance: ONDANSETRON
     Indication: PRODUCT USED FOR UNKNOWN INDICATION
     Route: 048
  14. ZOPHREN [Suspect]
     Active Substance: ONDANSETRON
     Dosage: 8 MG/4ML
     Route: 042
     Dates: start: 20150827, end: 20150828
  15. YERVOY [Suspect]
     Active Substance: IPILIMUMAB
     Dosage: 3 MG/KG AT 200MG, TIW
     Route: 042
     Dates: start: 20150413
  16. CORTANCYL [Concomitant]
     Active Substance: PREDNISONE
     Indication: PRODUCT USED FOR UNKNOWN INDICATION
     Dosage: 70 MG, QD
     Route: 065
  17. SOLU-MEDROL [Concomitant]
     Active Substance: METHYLPREDNISOLONE SODIUM SUCCINATE
     Dosage: 1000 MG, UNK (BOLUS)
     Route: 065
     Dates: start: 20150625
  18. SOLU-MEDROL [Concomitant]
     Active Substance: METHYLPREDNISOLONE SODIUM SUCCINATE
     Dosage: 1000 MG, UNK (BOLUS)
     Route: 065
     Dates: start: 20150626
  19. EMEND [Suspect]
     Active Substance: APREPITANT
     Indication: PRODUCT USED FOR UNKNOWN INDICATION
     Route: 048
  20. MUPHORAN [Suspect]
     Active Substance: FOTEMUSTINE
     Dosage: 130 MG, ONCE/SINGLE
     Route: 065
     Dates: start: 20150911, end: 20150911
  21. AZITHROMYCIN [Concomitant]
     Active Substance: AZITHROMYCIN ANHYDROUS
     Indication: PRODUCT USED FOR UNKNOWN INDICATION
     Route: 065

REACTIONS (13)
  - Hepatocellular injury [Recovering/Resolving]
  - Blood alkaline phosphatase increased [Recovered/Resolved]
  - Gamma-glutamyltransferase increased [Recovering/Resolving]
  - Eosinophilia [Recovered/Resolved]
  - Blood bilirubin increased [Recovered/Resolved]
  - Pyrexia [Recovered/Resolved]
  - Aspartate aminotransferase increased [Recovered/Resolved]
  - Blood alkaline phosphatase increased [Recovered/Resolved]
  - Aspartate aminotransferase increased [Recovered/Resolved]
  - Gamma-glutamyltransferase increased [Recovered/Resolved]
  - Alanine aminotransferase increased [Recovering/Resolving]
  - Alanine aminotransferase increased [Recovered/Resolved]
  - Hepatitis [Recovered/Resolved]

NARRATIVE: CASE EVENT DATE: 201508
